FAERS Safety Report 6838053-3 (Version None)
Quarter: 2010Q3

REPORT INFORMATION
  Report Type: 
  Country: None (occurrence: None)
  Receive Date: 20100713
  Receipt Date: 20070531
  Transmission Date: 20110219
  Serious: No
  Sender: FDA-Public Use
  Company Number: US-PFIZER INC-2007045266

PATIENT
  Age: 45 Year
  Sex: Male

DRUGS (3)
  1. CHANTIX [Suspect]
  2. LIPITOR [Interacting]
  3. VIAGRA [Interacting]

REACTIONS (2)
  - DRUG INTERACTION [None]
  - ERECTILE DYSFUNCTION [None]
